FAERS Safety Report 10534440 (Version 1)
Quarter: 2014Q4

REPORT INFORMATION
  Report Type: Spontaneous
  Country: US (occurrence: None)
  Receive Date: 20141020
  Receipt Date: 20141020
  Transmission Date: 20150529
  Serious: Yes (Disabling, Other)
  Sender: FDA-Public Use
  Company Number: 1210-553

PATIENT
  Age: 83 Year
  Sex: Female

DRUGS (17)
  1. PRAVASTATIN [Concomitant]
     Active Substance: PRAVASTATIN\PRAVASTATIN SODIUM
  2. CYCLOBENZAPRINE (CYCLOBENZAPRINE) [Concomitant]
     Active Substance: CYCLOBENZAPRINE
  3. GABAPENTIN (GABAPENTIN) [Concomitant]
     Active Substance: GABAPENTIN
  4. CLOPIDOGREL [Concomitant]
     Active Substance: CLOPIDOGREL BISULFATE
  5. ASPIRIN (ACETYLSALICYLIC ACID) [Concomitant]
     Active Substance: ASPIRIN
  6. CIPROFLOXACIN (CIPROFLOXACIN) [Concomitant]
     Active Substance: CIPROFLOXACIN
  7. EYLEA [Suspect]
     Active Substance: AFLIBERCEPT
     Indication: AGE-RELATED MACULAR DEGENERATION
     Dosage: AS NECESSARY
     Route: 031
     Dates: start: 20120906, end: 20121004
  8. THEOPHYLLINE (THEOPHYLLINE) [Concomitant]
     Active Substance: THEOPHYLLINE ANHYDROUS
  9. RABEPRAZOLE (RABEPRAZOLE) [Concomitant]
     Active Substance: RABEPRAZOLE
  10. HYDROCODONE (HYDROCODONE) [Concomitant]
     Active Substance: HYDROCODONE
  11. NEBIVOLOL (NEBIVOLOL) [Concomitant]
  12. DIFLUPREDNATE (DIFLUPREDNATE) [Concomitant]
  13. CARVEDILOL (CARVEDILOL) [Concomitant]
     Active Substance: CARVEDILOL
  14. PANTOPRAZOLE (PANTOPRAZOLE) [Concomitant]
     Active Substance: PANTOPRAZOLE SODIUM
  15. MELOXICAM (MELOXICAM) [Concomitant]
     Active Substance: MELOXICAM
  16. ALBUTEROL W/IPRATROPIUM (IPRATROPIUM, SALBUTAMOL) [Concomitant]
  17. BUMETANIDE (BUMETANIDE) [Concomitant]
     Active Substance: BUMETANIDE

REACTIONS (3)
  - Endophthalmitis [None]
  - Blindness unilateral [None]
  - Vitrectomy [None]

NARRATIVE: CASE EVENT DATE: 20121010
